FAERS Safety Report 12722529 (Version 1)
Quarter: 2016Q3

REPORT INFORMATION
  Report Type: Other
  Country: US (occurrence: US)
  Receive Date: 20160907
  Receipt Date: 20160907
  Transmission Date: 20161109
  Serious: No
  Sender: FDA-Public Use
  Company Number: US-COL_21589_2015

PATIENT
  Age: 67 Year
  Sex: Female

DRUGS (1)
  1. COLGATE TOTAL ADVANCED WHITENING [Suspect]
     Active Substance: SODIUM FLUORIDE\TRICLOSAN
     Indication: PRODUCT USED FOR UNKNOWN INDICATION
     Dosage: COVERED HALF THE HEAD OF THE TOOTHBRUSH/ONCE/
     Route: 048
     Dates: start: 20151211, end: 20151211

REACTIONS (4)
  - Pharyngeal disorder [Recovered/Resolved]
  - Product taste abnormal [Unknown]
  - Hypoaesthesia oral [Recovered/Resolved]
  - Tongue discomfort [Recovered/Resolved]

NARRATIVE: CASE EVENT DATE: 20151211
